FAERS Safety Report 6305883-6 (Version None)
Quarter: 2009Q3

REPORT INFORMATION
  Report Type: 
  Country: None (occurrence: None)
  Receive Date: 20090810
  Receipt Date: 20090810
  Transmission Date: 20100115
  Serious: Yes (Hospitalization)
  Sender: FDA-Public Use
  Company Number: None

PATIENT
  Age: 86 Year
  Sex: Male
  Weight: 84.01 kg

DRUGS (1)
  1. TERAZOSIN HCL [Suspect]
     Indication: BENIGN PROSTATIC HYPERPLASIA
     Dosage: 4 MG EVERY DAY PO
     Route: 048
     Dates: start: 20090515, end: 20090731

REACTIONS (7)
  - ATRIAL FIBRILLATION [None]
  - DIZZINESS [None]
  - DYSSTASIA [None]
  - HYPERHIDROSIS [None]
  - HYPOTENSION [None]
  - PALPITATIONS [None]
  - VOMITING [None]
